FAERS Safety Report 8940661 (Version 2)
Quarter: 2012Q4

REPORT INFORMATION
  Report Type: 
  Country: US (occurrence: US)
  Receive Date: 20121203
  Receipt Date: 20121226
  Transmission Date: 20130627
  Serious: Yes (Other)
  Sender: FDA-Public Use
  Company Number: US-ROCHE-1162950

PATIENT
  Age: 46 Year
  Sex: Female
  Weight: 61.29 kg

DRUGS (11)
  1. ACTEMRA [Suspect]
     Indication: RHEUMATOID ARTHRITIS
     Dosage: Latest dose prior to infusion-on 29/Nov/2012
     Route: 042
     Dates: start: 20120417
  2. ACTEMRA [Suspect]
     Route: 042
     Dates: start: 20120904
  3. ACTEMRA [Suspect]
     Route: 042
     Dates: start: 20121011
  4. ACTEMRA [Suspect]
     Route: 042
     Dates: start: 20121129
  5. VITAMIN B12 [Concomitant]
  6. DEXILANT [Concomitant]
  7. CYMBALTA [Concomitant]
  8. VIVELLE-DOT [Concomitant]
  9. FOLIC ACID [Concomitant]
  10. RESTORIL [Concomitant]
  11. EFFEXOR [Concomitant]
     Indication: DEPRESSION

REACTIONS (2)
  - Convulsion [Unknown]
  - Psychogenic seizure [Unknown]
